FAERS Safety Report 7529942-5 (Version None)
Quarter: 2011Q2

REPORT INFORMATION
  Report Type: 
  Country: None (occurrence: None)
  Receive Date: 20110607
  Receipt Date: 20110523
  Transmission Date: 20111010
  Serious: Yes (Death)
  Sender: FDA-Public Use
  Company Number: US-JUTA GMBH-2011-07239

PATIENT
  Age: 19 Year
  Sex: Male

DRUGS (2)
  1. LISINOPRIL [Suspect]
     Indication: SUICIDE ATTEMPT
     Dosage: 30 TABLETS
     Route: 048
  2. AMLODIPINE [Suspect]
     Indication: SUICIDE ATTEMPT
     Dosage: 70, 10MG TABLETS
     Route: 048

REACTIONS (3)
  - TOXICITY TO VARIOUS AGENTS [None]
  - HYPOTENSION [None]
  - OVERDOSE [None]
